FAERS Safety Report 15949378 (Version 2)
Quarter: 2019Q2

REPORT INFORMATION
  Report Type: Report from Study
  Country: JP (occurrence: JP)
  Receive Date: 20190211
  Receipt Date: 20190408
  Transmission Date: 20190711
  Serious: Yes (Death, Other)
  Sender: FDA-Public Use
  Company Number: JP-AMGEN-JPNNI2019019690

PATIENT
  Age: 80 Year
  Sex: Female
  Weight: 47.5 kg

DRUGS (1)
  1. ETELCALCETIDE [Suspect]
     Active Substance: ETELCALCETIDE
     Indication: HYPERPARATHYROIDISM SECONDARY
     Dosage: 5 MILLIGRAM, 3 TIMES/WK
     Route: 010
     Dates: start: 20171012, end: 20171228

REACTIONS (2)
  - Peripheral ischaemia [Fatal]
  - Hypoxia [Fatal]

NARRATIVE: CASE EVENT DATE: 20171229
